FAERS Safety Report 6244990-3 (Version None)
Quarter: 2009Q2

REPORT INFORMATION
  Report Type: 
  Country: None (occurrence: None)
  Receive Date: 20090625
  Receipt Date: 20090617
  Transmission Date: 20091009
  Serious: No
  Sender: FDA-Public Use
  Company Number: CA-ELI_LILLY_AND_COMPANY-CA200903006652

PATIENT
  Age: 76 Year
  Sex: Female

DRUGS (5)
  1. FORTEO [Suspect]
     Indication: OSTEOPOROSIS
     Dosage: 20 UG, DAILY (1/D)
     Dates: start: 20070112, end: 20070101
  2. MIACALCIN [Concomitant]
  3. SYNTHROID [Concomitant]
  4. VITAMIN D [Concomitant]
  5. ANALGESICS [Concomitant]

REACTIONS (2)
  - MUSCULOSKELETAL PAIN [None]
  - NECK PAIN [None]
